FAERS Safety Report 15857273 (Version 1)
Quarter: 2019Q1

REPORT INFORMATION
  Report Type: Spontaneous
  Country: US (occurrence: US)
  Receive Date: 20190123
  Receipt Date: 20190123
  Transmission Date: 20190417
  Serious: Yes (Life-Threatening, Other)
  Sender: FDA-Public Use
  Company Number: US-SA-2018SA390488

PATIENT
  Age: 54 Year
  Sex: Male

DRUGS (6)
  1. CAPECITABINE. [Suspect]
     Active Substance: CAPECITABINE
     Indication: RECTAL ADENOCARCINOMA
     Dosage: XELOX-BEVACIZUMAB: CAPECITABINE 850 MG/M^2 TWICE DAILY (BID) FOR 14 DAYS EVERY 21 DAYS
  2. OXALIPLATIN. [Suspect]
     Active Substance: OXALIPLATIN
     Indication: RECTAL ADENOCARCINOMA
     Dosage: 130 MG/M^2 INTRAVENOUS (IV OVER 2 HOURS ON DAY 1 EVERY 3 WEEKS)
     Route: 042
  3. OXALIPLATIN. [Suspect]
     Active Substance: OXALIPLATIN
     Indication: COLORECTAL CANCER METASTATIC
  4. CAPECITABINE. [Suspect]
     Active Substance: CAPECITABINE
     Indication: COLORECTAL CANCER METASTATIC
     Dosage: 825 MG/M2, BID ON DAY OF RADIATION
  5. BEVACIZUMAB. [Concomitant]
     Active Substance: BEVACIZUMAB
     Indication: COLORECTAL CANCER METASTATIC
  6. BEVACIZUMAB. [Concomitant]
     Active Substance: BEVACIZUMAB
     Indication: RECTAL ADENOCARCINOMA
     Dosage: 7.5 MG/KG IV ON DAY 1 EVERY 3 WEEKS
     Route: 042

REACTIONS (2)
  - Neuropathy peripheral [Unknown]
  - Hypertriglyceridaemia [Recovering/Resolving]
